FAERS Safety Report 22113071 (Version 1)
Quarter: 2023Q1

REPORT INFORMATION
  Report Type: Report from Study
  Country: US (occurrence: None)
  Receive Date: 20230320
  Receipt Date: 20230320
  Transmission Date: 20230417
  Serious: Yes (Death)
  Sender: FDA-Public Use
  Company Number: US-ROCHE-3312773

PATIENT

DRUGS (2)
  1. DORNASE ALFA [Suspect]
     Active Substance: DORNASE ALFA
     Indication: COVID-19
     Dosage: DATE OF LAST DOSE 02/OCT/2021
     Route: 065
     Dates: start: 20210909
  2. DORNASE ALFA [Suspect]
     Active Substance: DORNASE ALFA
     Indication: Acute respiratory distress syndrome

REACTIONS (1)
  - Death [Fatal]

NARRATIVE: CASE EVENT DATE: 20211002
